FAERS Safety Report 8303904-2 (Version None)
Quarter: 2012Q2

REPORT INFORMATION
  Report Type: 
  Country: None (occurrence: None)
  Receive Date: 20120423
  Receipt Date: 20120419
  Transmission Date: 20120825
  Serious: Yes (Other)
  Sender: FDA-Public Use
  Company Number: US-RB-038264-12

PATIENT
  Age: 3 Year
  Sex: Female
  Weight: 18 kg

DRUGS (1)
  1. MUCINEX CHILDREN'S COUGH CHERRY SUPPRESSANT [Suspect]
     Indication: ASTHMA
     Route: 048
     Dates: start: 20120417

REACTIONS (5)
  - URTICARIA [None]
  - OFF LABEL USE [None]
  - HYPERSENSITIVITY [None]
  - ACCIDENTAL DRUG INTAKE BY CHILD [None]
  - LIP SWELLING [None]
